FAERS Safety Report 22006913 (Version 1)
Quarter: 2023Q1

REPORT INFORMATION
  Report Type: Spontaneous
  Country: US (occurrence: US)
  Receive Date: 20230217
  Receipt Date: 20230217
  Transmission Date: 20230417
  Serious: No
  Sender: FDA-Public Use
  Company Number: US-BAYER-2023P010830

PATIENT
  Age: 40 Year
  Sex: Female

DRUGS (2)
  1. LORATADINE [Suspect]
     Active Substance: LORATADINE
     Indication: Periorbital oedema
  2. PREDNISOLONE [Concomitant]
     Active Substance: PREDNISOLONE
     Indication: Periorbital oedema

REACTIONS (2)
  - Off label use [None]
  - Drug ineffective for unapproved indication [None]
